FAERS Safety Report 9302556 (Version 1)
Quarter: 2013Q2

REPORT INFORMATION
  Report Type: Spontaneous
  Country: GB (occurrence: None)
  Receive Date: 20130517
  Receipt Date: 20130517
  Transmission Date: 20140414
  Serious: Yes (Other)
  Sender: FDA-Public Use
  Company Number: AUR-APL-2013-03880

PATIENT
  Age: 51 Year
  Sex: Female
  Weight: 71 kg

DRUGS (2)
  1. AMLODIPINE (AMLODIPINE) [Suspect]
     Indication: PRODUCT USED FOR UNKNOWN INDICATION
     Dates: start: 20121218
  2. RAMIPRIL (RAMIPRIL) [Concomitant]

REACTIONS (2)
  - Gingival hyperplasia [None]
  - Tooth disorder [None]
